FAERS Safety Report 4480658-1 (Version None)
Quarter: 2004Q4

REPORT INFORMATION
  Report Type: 
  Country: None (occurrence: None)
  Receive Date: 20041019
  Receipt Date: 20041006
  Transmission Date: 20050328
  Serious: Yes (Hospitalization, Other)
  Sender: FDA-Public Use
  Company Number: 2004075210

PATIENT

DRUGS (8)
  1. NEURONTIN [Suspect]
     Indication: DEPRESSION
     Dosage: 600 MG (100 MG, 6 IN 1 D), ORAL
     Route: 048
     Dates: start: 20010101, end: 20040101
  2. METHAMPHETAMINE HCL [Suspect]
     Indication: ILL-DEFINED DISORDER
  3. ETHANOL (ETHANOL) [Suspect]
     Indication: ILL-DEFINED DISORDER
  4. OLANZAPINE [Concomitant]
  5. LORAZEPAM [Concomitant]
  6. QUETIAPINE FUMARATE (QUETIAPINE FUMARATE) [Concomitant]
  7. CLONAZEPAM [Concomitant]
  8. ESCITALOPRAM (ESCITALOPRAM) [Concomitant]

REACTIONS (10)
  - ALCOHOLISM [None]
  - BELLIGERENCE [None]
  - CARDIAC ARREST [None]
  - COMA [None]
  - DRUG ABUSER [None]
  - MARITAL PROBLEM [None]
  - PERSONALITY CHANGE [None]
  - ROAD TRAFFIC ACCIDENT [None]
  - SUICIDAL IDEATION [None]
  - WEIGHT DECREASED [None]
